FAERS Safety Report 9592826 (Version 1)
Quarter: 2013Q4

REPORT INFORMATION
  Report Type: Spontaneous
  Country: AU (occurrence: AU)
  Receive Date: 20131004
  Receipt Date: 20131004
  Transmission Date: 20140711
  Serious: Yes (Other)
  Sender: FDA-Public Use
  Company Number: PHHY2013AU110396

PATIENT
  Sex: Male

DRUGS (6)
  1. ZOMETA [Suspect]
     Dosage: UNK UKN, UNK
  2. AMINOGLUTETHAMID [Suspect]
     Dosage: UNK UKN, UNK
  3. LUCRIN [Concomitant]
     Dosage: UNK UKN, UNK
  4. BICALUTAMIDE [Concomitant]
     Dosage: UNK UKN, UNK
  5. PREDNISONE [Concomitant]
     Dosage: UNK UKN, UNK
  6. ROSUVASTATIN [Concomitant]
     Dosage: UNK UKN, UNK

REACTIONS (5)
  - Metabolic acidosis [Unknown]
  - Diarrhoea [Unknown]
  - Hyperkalaemia [Unknown]
  - Rash [Unknown]
  - Renal failure acute [Unknown]
